FAERS Safety Report 6679408-X (Version None)
Quarter: 2010Q2

REPORT INFORMATION
  Report Type: 
  Country: None (occurrence: None)
  Receive Date: 20100413
  Receipt Date: 20100407
  Transmission Date: 20101027
  Serious: Yes (Life-Threatening, Hospitalization)
  Sender: FDA-Public Use
  Company Number: IT-ROCHE-695659

PATIENT
  Sex: Male
  Weight: 63 kg

DRUGS (7)
  1. METHOXY POLYETHYLENE GLYCOL-EPOETIN BETA [Suspect]
     Dosage: LAST DOSE PRIOR TO SAE: 9 MARCH 2009;PERMANENTLY DISCONTINUED.
     Route: 042
     Dates: start: 20090627, end: 20100406
  2. VIT C [Concomitant]
     Dates: start: 20091031
  3. FOLINIC ACID [Concomitant]
     Dates: start: 20091031
  4. TELMISARTAN [Concomitant]
     Dates: start: 20100303
  5. RANITIDINE HCL [Concomitant]
     Dates: start: 20090809
  6. ACETYLSALICYLIC ACID [Concomitant]
     Dates: start: 20091104
  7. CALCIUM CARBONATE [Concomitant]
     Dates: start: 20080610

REACTIONS (1)
  - PULMONARY EMBOLISM [None]
